FAERS Safety Report 7422385-4 (Version None)
Quarter: 2011Q2

REPORT INFORMATION
  Report Type: 
  Country: None (occurrence: None)
  Receive Date: 20110419
  Receipt Date: 20110407
  Transmission Date: 20111010
  Serious: No
  Sender: FDA-Public Use
  Company Number: US-BIOGENIDEC-2011BI013475

PATIENT
  Age: 55 Year
  Sex: Female

DRUGS (1)
  1. TYSABRI [Suspect]
     Indication: MULTIPLE SCLEROSIS
     Route: 042
     Dates: start: 20070220

REACTIONS (11)
  - FEELING ABNORMAL [None]
  - DEPRESSION [None]
  - HEPATIC ENZYME ABNORMAL [None]
  - COGNITIVE DISORDER [None]
  - MUSCULAR WEAKNESS [None]
  - PAIN IN EXTREMITY [None]
  - VISUAL IMPAIRMENT [None]
  - FATIGUE [None]
  - SPINAL CORD COMPRESSION [None]
  - MYALGIA [None]
  - MIGRAINE [None]
